FAERS Safety Report 7467105-2 (Version None)
Quarter: 2011Q2

REPORT INFORMATION
  Report Type: 
  Country: None (occurrence: None)
  Receive Date: 20110509
  Receipt Date: 20101018
  Transmission Date: 20111010
  Serious: No
  Sender: FDA-Public Use
  Company Number: US-ALEXION-A201001316

PATIENT
  Sex: Female

DRUGS (6)
  1. CALCIUM CARBONATE W/MAGNESIUM [Concomitant]
     Indication: MINERAL SUPPLEMENTATION
     Dosage: UNK
     Route: 048
  2. SOLIRIS [Suspect]
     Indication: PAROXYSMAL NOCTURNAL HAEMOGLOBINURIA
     Dosage: 600 MG, QW
     Route: 042
     Dates: start: 20090917, end: 20091001
  3. LOVENOX [Concomitant]
     Indication: PAROXYSMAL NOCTURNAL HAEMOGLOBINURIA
     Dosage: 40 MG, QD
     Route: 058
  4. SOLIRIS [Suspect]
     Dosage: 900 MG, Q2W
     Route: 042
     Dates: start: 20091015
  5. ADVIL LIQUI-GELS [Concomitant]
     Indication: ARTHRALGIA
     Dosage: UNK
  6. SANTYL [Concomitant]
     Indication: WOUND TREATMENT
     Dosage: UNK
     Route: 061

REACTIONS (1)
  - HAEMOGLOBIN DECREASED [None]
